FAERS Safety Report 22172983 (Version 1)
Quarter: 2023Q2

REPORT INFORMATION
  Report Type: Spontaneous
  Country: US (occurrence: None)
  Receive Date: 20230403
  Receipt Date: 20230403
  Transmission Date: 20230722
  Serious: Yes (Death, Hospitalization)
  Sender: FDA-Public Use
  Company Number: None

PATIENT
  Age: 59 Year
  Sex: Male
  Weight: 82.44 kg

DRUGS (10)
  1. REVLIMID [Suspect]
     Active Substance: LENALIDOMIDE
     Indication: Plasma cell myeloma
     Dosage: FREQUENCY : DAILY;?
     Route: 048
     Dates: start: 20201117, end: 20230330
  2. Acyclovir 400 MG Oral [Concomitant]
  3. Biktarvy 50 mg-200 mg-25 mg tablet [Concomitant]
  4. dexamethasone 2 mg tablet [Concomitant]
  5. Eliquis 2.5 mg tablet [Concomitant]
  6. Keppra 500 mg tablet [Concomitant]
  7. ondansetron 8 mg disintegrating table [Concomitant]
  8. Percocet 5 mg-325 mg tablet [Concomitant]
  9. sulfamethoxazole 800 mg-trimethoprim 160 mg tablet [Concomitant]
  10. TobraDex 0.3 %-0.1 % eye drops,suspension [Concomitant]

REACTIONS (7)
  - Head injury [None]
  - Fall [None]
  - Seizure [None]
  - Hyponatraemia [None]
  - Carotid artery occlusion [None]
  - Brain oedema [None]
  - Neurological decompensation [None]

NARRATIVE: CASE EVENT DATE: 20230330
